FAERS Safety Report 13002175 (Version 1)
Quarter: 2016Q4

REPORT INFORMATION
  Report Type: Spontaneous
  Country: US (occurrence: US)
  Receive Date: 20161206
  Receipt Date: 20161206
  Transmission Date: 20170207
  Serious: Yes (Other)
  Sender: FDA-Public Use
  Company Number: US-GLAXOSMITHKLINE-US2016178307

PATIENT
  Age: 79 Year
  Sex: Female

DRUGS (1)
  1. VOLTAREN [Suspect]
     Active Substance: DICLOFENAC SODIUM
     Indication: ARTHRITIS
     Dosage: UNK

REACTIONS (5)
  - Seizure [Unknown]
  - Prescription drug used without a prescription [Unknown]
  - Radiotherapy [Unknown]
  - Brain operation [Unknown]
  - Calcinosis [Unknown]

NARRATIVE: CASE EVENT DATE: 2008
